FAERS Safety Report 8187127-6 (Version None)
Quarter: 2012Q1

REPORT INFORMATION
  Report Type: 
  Country: None (occurrence: None)
  Receive Date: 20120306
  Receipt Date: 20120224
  Transmission Date: 20120608
  Serious: Yes (Hospitalization, Other)
  Sender: FDA-Public Use
  Company Number: US-ACTELION-A-NJ2012-60088

PATIENT

DRUGS (2)
  1. TRACLEER [Suspect]
     Dosage: 62.5 MG, BID
     Route: 048
     Dates: start: 20111014, end: 20111101
  2. TRACLEER [Suspect]
     Indication: PULMONARY ARTERIAL HYPERTENSION
     Dosage: 125 MG, BID
     Route: 048
     Dates: start: 20111101

REACTIONS (11)
  - RED BLOOD CELL COUNT DECREASED [None]
  - FLUID OVERLOAD [None]
  - PULMONARY OEDEMA [None]
  - DYSPNOEA [None]
  - DECUBITUS ULCER [None]
  - TRANSFUSION [None]
  - POST PROCEDURAL COMPLICATION [None]
  - OEDEMA [None]
  - HAEMATOCRIT DECREASED [None]
  - ANAEMIA [None]
  - HAEMOGLOBIN DECREASED [None]
